FAERS Safety Report 13110067 (Version 1)
Quarter: 2017Q1

REPORT INFORMATION
  Report Type: Spontaneous
  Country: US (occurrence: US)
  Receive Date: 20170112
  Receipt Date: 20170112
  Transmission Date: 20170428
  Serious: Yes (Death)
  Sender: FDA-Public Use
  Company Number: US-ROCHE-1101534

PATIENT
  Age: 62 Year
  Sex: Male

DRUGS (5)
  1. HYGROTON [Concomitant]
     Active Substance: CHLORTHALIDONE
  2. ISORDIL [Concomitant]
     Active Substance: ISOSORBIDE DINITRATE
  3. NITROGLYCERIN. [Concomitant]
     Active Substance: NITROGLYCERIN
  4. ACTIVASE [Suspect]
     Active Substance: ALTEPLASE
     Indication: MYOCARDIAL INFARCTION
     Route: 065
  5. LANOXIN [Concomitant]
     Active Substance: DIGOXIN

REACTIONS (1)
  - Cardiac arrest [Fatal]
